FAERS Safety Report 11568034 (Version 3)
Quarter: 2015Q4

REPORT INFORMATION
  Report Type: Report from Study
  Country: DE (occurrence: DE)
  Receive Date: 20150929
  Receipt Date: 20151202
  Transmission Date: 20160304
  Serious: Yes (Other)
  Sender: FDA-Public Use
  Company Number: DE-ROCHE-1608629

PATIENT
  Age: 64 Year
  Sex: Male
  Weight: 82 kg

DRUGS (1)
  1. BEVACIZUMAB [Suspect]
     Active Substance: BEVACIZUMAB
     Indication: NON-SMALL CELL LUNG CANCER
     Dosage: LAST DOSE OF BEVECIZUMAB ON 09/JUL/2015  (SECOND CYCLE) PRIOR SAE= 600 MG, THIRD CYCLE (30/JUL/2015)
     Route: 042
     Dates: start: 20150618, end: 20150730

REACTIONS (7)
  - Nausea [Recovered/Resolved]
  - Leukopenia [Recovered/Resolved]
  - Tumour lysis syndrome [Unknown]
  - Arthralgia [Recovered/Resolved]
  - Constipation [Recovered/Resolved]
  - Abdominal pain upper [Recovered/Resolved]
  - Haemoptysis [Unknown]

NARRATIVE: CASE EVENT DATE: 20150619
